FAERS Safety Report 24347395 (Version 1)
Quarter: 2024Q3

REPORT INFORMATION
  Report Type: Report from Study
  Country: US (occurrence: US)
  Receive Date: 20240922
  Receipt Date: 20240922
  Transmission Date: 20241016
  Serious: Yes (Hospitalization, Other)
  Sender: UCB
  Company Number: US-UCBSA-2024009693

PATIENT
  Age: 3 Year
  Sex: Female
  Weight: 13.2 kg

DRUGS (22)
  1. FINTEPLA [Suspect]
     Active Substance: FENFLURAMINE
     Indication: Severe myoclonic epilepsy of infancy
     Dosage: 1 ML IN MORNING 2 ML IN EVENING
     Dates: start: 20220922
  2. FINTEPLA [Suspect]
     Active Substance: FENFLURAMINE
     Dosage: 1 ML IN MORNING 2 ML IN EVENING
     Dates: start: 20220922
  3. FINTEPLA [Suspect]
     Active Substance: FENFLURAMINE
     Dosage: 1 ML IN MORNING 2 ML IN EVENING
  4. FINTEPLA [Suspect]
     Active Substance: FENFLURAMINE
     Dosage: 1 ML VIA G-TUBE IN AM 2 ML PM
     Route: 048
  5. FINTEPLA [Suspect]
     Active Substance: FENFLURAMINE
     Dosage: 1ML IN THE MORNING AND 2ML IN THE EVENING
  6. VALPROIC ACID [Suspect]
     Active Substance: VALPROIC ACID
     Indication: Product used for unknown indication
     Dosage: UNK
  7. VALPROIC ACID [Suspect]
     Active Substance: VALPROIC ACID
     Dosage: DOSE INCREASED
  8. EPIDIOLEX [Suspect]
     Active Substance: CANNABIDIOL
     Indication: Product used for unknown indication
     Dosage: UNK
  9. EPIDIOLEX [Suspect]
     Active Substance: CANNABIDIOL
     Dosage: DOSE INCREASED
  10. CEPHALEXIN [Concomitant]
     Active Substance: CEPHALEXIN
     Indication: Product used for unknown indication
     Dosage: 4 MILLILITER, 3X/DAY (TID)
     Route: 048
  11. ZYRTEC [Concomitant]
     Active Substance: CETIRIZINE HYDROCHLORIDE
     Indication: Product used for unknown indication
     Dosage: 5 MILLIGRAM, ONCE DAILY (QD)
  12. DIASTAT [Concomitant]
     Active Substance: DIAZEPAM
     Indication: Seizure
     Dosage: 7.5 MILLIGRAM, AS NEEDED (PRN)
     Route: 054
  13. VALIUM [Concomitant]
     Active Substance: DIAZEPAM
     Indication: Pyrexia
     Dosage: 2 MILLIGRAM, 3X/DAY (TID)
  14. VALIUM [Concomitant]
     Active Substance: DIAZEPAM
     Indication: Severe myoclonic epilepsy of infancy
  15. DEPAKENE [Concomitant]
     Active Substance: VALPROIC ACID
     Indication: Severe myoclonic epilepsy of infancy
     Dosage: 3.5 MILLILITER, 3X/DAY (TID)
  16. DEPAKENE [Concomitant]
     Active Substance: VALPROIC ACID
     Dosage: 3 ML AT 7 AM, 2.5ML AT 12PM, 3ML AT 7PM
  17. DIACOMIT [Concomitant]
     Active Substance: STIRIPENTOL
     Indication: Severe myoclonic epilepsy of infancy
     Dosage: TAKE 250MG THROUGH THE G-TUBE EVERY MORNING AND 250MG EVERY EVENING AND 250MG NIGHTLY
  18. MIDAZOLAM [Concomitant]
     Active Substance: MIDAZOLAM
     Indication: Seizure
     Dosage: 0.6 MILLILITER, AS NEEDED (PRN)
     Route: 045
  19. ONFI [Concomitant]
     Active Substance: CLOBAZAM
     Indication: Severe myoclonic epilepsy of infancy
     Dosage: 5 MILLIGRAM, ONCE DAILY (QD)
  20. CARNITOR [Concomitant]
     Active Substance: LEVOCARNITINE
     Indication: Severe myoclonic epilepsy of infancy
     Dosage: 5 MILLILITER, 2X/DAY (BID)
  21. ZOFRAN [Concomitant]
     Active Substance: ONDANSETRON HYDROCHLORIDE
     Indication: Product used for unknown indication
     Dosage: 2 MILLIGRAM, AS NEEDED (PRN)
  22. E.E.S. [Concomitant]
     Active Substance: ERYTHROMYCIN ETHYLSUCCINATE
     Indication: Product used for unknown indication
     Dosage: 1.7 MILLILITER, 3X/DAY (TID)

REACTIONS (12)
  - Vomiting [Not Recovered/Not Resolved]
  - Impaired gastric emptying [Not Recovered/Not Resolved]
  - Seizure [Recovered/Resolved]
  - Rhinovirus infection [Recovered/Resolved]
  - Enterovirus infection [Not Recovered/Not Resolved]
  - Bacteriuria [Recovered/Resolved]
  - Hypersomnia [Recovered/Resolved]
  - Pneumonia [Unknown]
  - Aggression [Not Recovered/Not Resolved]
  - Vagal nerve stimulator implantation [Recovered/Resolved]
  - Drug ineffective [Unknown]
  - Wrong technique in product usage process [Unknown]

NARRATIVE: CASE EVENT DATE: 20240508
